FAERS Safety Report 8789606 (Version 1)
Quarter: 2012Q4

REPORT INFORMATION
  Report Type: Spontaneous
  Country: US (occurrence: None)
  Receive Date: 20120910
  Receipt Date: 20120910
  Transmission Date: 20130627
  Serious: No
  Sender: FDA-Public Use
  Company Number: None

PATIENT
  Age: 53 Year
  Sex: Female
  Weight: 85.73 kg

DRUGS (2)
  1. DOXYCYCLINE [Suspect]
     Route: 048
     Dates: start: 20120801, end: 20120804
  2. LEXAPRO [Suspect]
     Dosage: 1/2 dose approx 12/04
     Route: 048
     Dates: start: 200412

REACTIONS (2)
  - Paraesthesia [None]
  - Panic attack [None]
